FAERS Safety Report 6764600-6 (Version None)
Quarter: 2010Q2

REPORT INFORMATION
  Report Type: 
  Country: None (occurrence: None)
  Receive Date: 20100610
  Receipt Date: 20100602
  Transmission Date: 20101027
  Serious: Yes (Death, Hospitalization, Other)
  Sender: FDA-Public Use
  Company Number: HQWYE648214FEB07

PATIENT
  Age: 69 Year
  Sex: Male
  Weight: 79.7 kg

DRUGS (12)
  1. TEMSIROLIMUS [Suspect]
     Indication: GLIOBLASTOMA MULTIFORME
     Dosage: 75 MG OVER 30 MINUTES
     Route: 042
     Dates: start: 20070124, end: 20070124
  2. ALLOPURINOL [Concomitant]
     Dosage: DOSE AND FREQUENCY NOT PROVIDED
  3. HYZAAR [Concomitant]
     Dosage: DOSE AND FREQUENCY NOT PROVIDED
  4. TOPROL-XL [Concomitant]
     Dosage: DOSE AND FREQUENCY NOT PROVIDED
  5. MULTI-VITAMINS [Concomitant]
     Dosage: DOSE AND FREQUENCY NOT PROVIDED
  6. OMEPRAZOLE [Concomitant]
     Dosage: DOSE AND FREQUENCY NOT PROVIDED
  7. DILTIAZEM HYDROCHLORIDE [Concomitant]
     Dosage: DOSE AND FREQUENCY NOT PROVIDED
  8. ASPIRIN [Concomitant]
     Dosage: DOSE AND FREQUENCY NOT PROVIDED
  9. TYLENOL [Concomitant]
     Dosage: DOSE AND FREQUENCY NOT PROVIDED
  10. FLUCONAZOLE [Concomitant]
     Dosage: DOSE AND FREQUENCY NOT PROVIDED
  11. VYTORIN [Concomitant]
     Dosage: DOSE AND FREQUENCY NOT PROVIDED
  12. DEXAMETHASONE [Suspect]
     Dosage: DOSE AND FREQUENCY NOT PROVIDED

REACTIONS (9)
  - ABDOMINAL ABSCESS [None]
  - BLOOD GLUCOSE INCREASED [None]
  - CONFUSIONAL STATE [None]
  - DYSPHAGIA [None]
  - ESCHERICHIA SEPSIS [None]
  - FATIGUE [None]
  - HYPOPHAGIA [None]
  - MUSCULAR WEAKNESS [None]
  - SOFT TISSUE NECROSIS [None]
